FAERS Safety Report 4359420-6 (Version None)
Quarter: 2004Q2

REPORT INFORMATION
  Report Type: 
  Country: None (occurrence: None)
  Receive Date: 20040518
  Receipt Date: 20040412
  Transmission Date: 20050107
  Serious: Yes (Hospitalization)
  Sender: FDA-Public Use
  Company Number: 200414140GDDC

PATIENT
  Age: 55 Year
  Sex: Female
  Weight: 94 kg

DRUGS (4)
  1. LANTUS [Suspect]
     Indication: DIABETES MELLITUS NON-INSULIN-DEPENDENT
     Dosage: DOSE UNIT: UNITS
     Route: 058
     Dates: start: 20040402
  2. TOLBUTAMIDE [Concomitant]
     Indication: DIABETES MELLITUS NON-INSULIN-DEPENDENT
  3. SIMVASTATIN [Concomitant]
  4. PERINDOPRIL [Concomitant]

REACTIONS (5)
  - CELLULITIS [None]
  - DIZZINESS [None]
  - HYPOGLYCAEMIA [None]
  - LETHARGY [None]
  - NAUSEA [None]
